FAERS Safety Report 10458980 (Version 3)
Quarter: 2014Q4

REPORT INFORMATION
  Report Type: Spontaneous
  Country: US (occurrence: None)
  Receive Date: 20140915
  Receipt Date: 20141007
  Transmission Date: 20150528
  Serious: Yes (Other)
  Sender: FDA-Public Use
  Company Number: 2014-US-011308

PATIENT
  Age: 35 Year
  Sex: Male
  Weight: 112.9 kg

DRUGS (9)
  1. XYREM [Suspect]
     Active Substance: SODIUM OXYBATE
     Indication: NARCOLEPSY
     Route: 048
     Dates: start: 200302, end: 2003
  2. XYREM [Suspect]
     Active Substance: SODIUM OXYBATE
     Indication: CATAPLEXY
     Route: 048
     Dates: start: 200302, end: 2003
  3. SEROQUEL [Suspect]
     Active Substance: QUETIAPINE FUMARATE
     Indication: PRODUCT USED FOR UNKNOWN INDICATION
     Dates: start: 2012, end: 2013
  4. VYTORIN [Concomitant]
     Active Substance: EZETIMIBE\SIMVASTATIN
  5. METHYLPHENIDATE (METHYLPHENIDATE HYDROCHLORIDE) [Concomitant]
  6. GLUCOPHAGE [Suspect]
     Active Substance: METFORMIN HYDROCHLORIDE
     Indication: DIABETES MELLITUS
     Dosage: UNKNOWN DOSE
  7. REGLAN (METOCLOPRAMIDE HYDROCHLORIDE) [Concomitant]
  8. INVEGA [Concomitant]
     Active Substance: PALIPERIDONE
  9. COZAAR [Concomitant]
     Active Substance: LOSARTAN POTASSIUM

REACTIONS (13)
  - Dehydration [None]
  - Deafness [None]
  - Oesophageal disorder [None]
  - Weight loss poor [None]
  - Asthma [None]
  - Gastrooesophageal reflux disease [None]
  - Feeling cold [None]
  - Diabetes mellitus [None]
  - Impaired gastric emptying [None]
  - Hypertriglyceridaemia [None]
  - Loss of consciousness [None]
  - Influenza like illness [None]
  - Hyperlipidaemia [None]

NARRATIVE: CASE EVENT DATE: 2004
